FAERS Safety Report 21112881 (Version 1)
Quarter: 2022Q3

REPORT INFORMATION
  Report Type: Other
  Country: GB (occurrence: GB)
  Receive Date: 20220721
  Receipt Date: 20220721
  Transmission Date: 20221027
  Serious: Yes (Hospitalization)
  Sender: FDA-Public Use
  Company Number: GB-MACLEODS PHARMA UK LTD-MAC2022036499

PATIENT

DRUGS (16)
  1. CLOPIDOGREL [Suspect]
     Active Substance: CLOPIDOGREL BISULFATE
     Indication: Product used for unknown indication
     Dosage: 75 MILLIGRAM, QD, BLISTER PACK-OM
     Route: 065
  2. MIRTAZAPINE [Concomitant]
     Active Substance: MIRTAZAPINE
     Indication: Product used for unknown indication
     Dosage: 45 MILLIGRAM, QD (ONE TO BE TAKEN AT NIGHT), BLISTER PACK
     Route: 065
     Dates: start: 20220121
  3. MIRTAZAPINE [Concomitant]
     Active Substance: MIRTAZAPINE
     Dosage: 30 MILLIGRAM, QD (ONE TO BE TAKEN AT NIGHT), 28 TABLET
     Route: 065
  4. MIRTAZAPINE [Concomitant]
     Active Substance: MIRTAZAPINE
     Dosage: 15 MILLIGRAM, QD (ONE NOCTE NOT LATER THAN 8 PM)
     Route: 065
  5. TAMSULOSIN [Concomitant]
     Active Substance: TAMSULOSIN
     Indication: Product used for unknown indication
     Dosage: 400 MICROGRAM, QD
     Route: 065
     Dates: start: 20220118
  6. AMLODIPINE [Concomitant]
     Active Substance: AMLODIPINE BESYLATE
     Indication: Product used for unknown indication
     Dosage: 10 MILLIGRAM, QD, BLISTER PACK
     Route: 065
     Dates: start: 20220114
  7. EZETIMIBE [Concomitant]
     Active Substance: EZETIMIBE
     Indication: Blood cholesterol abnormal
     Dosage: 10 MILLIGRAM, QD
     Route: 065
  8. LANTUS [Concomitant]
     Active Substance: INSULIN GLARGINE
     Indication: Product used for unknown indication
     Dosage: UNK (100UNITS/ML SOLUTION FOR INJECTION 3ML PRE-FILLED SOLOSTAR PENS, 24 UNITS EACH MORNING))
     Route: 058
  9. OptiFlo S saline [Concomitant]
     Indication: Product used for unknown indication
     Dosage: UNK (0.9% CATHETER MAINTENANCE SOLUTION USE)
     Route: 065
     Dates: start: 20220128
  10. CO-DYDRAMOL [Concomitant]
     Active Substance: ACETAMINOPHEN\DIHYDROCODEINE
     Indication: Product used for unknown indication
     Dosage: UNK UNK, PRN, (ONE OR TWO TO BE TAKEN FOUR TIMES A DAY WHEN REQUIRED), 50 TABLET
     Route: 065
     Dates: start: 20220124
  11. ACETAMINOPHEN [Concomitant]
     Active Substance: ACETAMINOPHEN
     Indication: Product used for unknown indication
     Dosage: UNK UNK, PRN
     Route: 065
  12. OXYCODONE HYDROCHLORIDE [Concomitant]
     Active Substance: OXYCODONE HYDROCHLORIDE
     Indication: Product used for unknown indication
     Dosage: UNK UNK, PRN
     Route: 065
  13. AMDINOCILLIN PIVOXIL [Concomitant]
     Active Substance: AMDINOCILLIN PIVOXIL
     Indication: Product used for unknown indication
     Dosage: 200 MILLIGRAM, TID (200MG TABLETS TAKE 1 THREE TIMES A DAY, APART FROM THE VERY FIRST DOSE WHEN YOU
     Route: 065
     Dates: start: 20220110
  14. CIPROFLOXACIN [Concomitant]
     Active Substance: CIPROFLOXACIN
     Indication: Product used for unknown indication
     Dosage: 500 MILLIGRAM, BID (ONE TO BE TAKEN TWICE A DAY), 14 TABLET -COMPLETE
     Route: 065
     Dates: start: 20211125
  15. CIPROFLOXACIN [Concomitant]
     Active Substance: CIPROFLOXACIN
     Dosage: 250 MILLIGRAM, BID (FOR 5 DAYS)
     Route: 065
     Dates: start: 20211125
  16. FINASTERIDE [Concomitant]
     Active Substance: FINASTERIDE
     Indication: Product used for unknown indication
     Dosage: 5 MILLIGRAM, QD, TAKE ONE TABLET EACH DAY
     Route: 065
     Dates: start: 20211117

REACTIONS (2)
  - Urinary tract infection [Recovered/Resolved]
  - Haematuria [Recovered/Resolved]
